FAERS Safety Report 7097592-3 (Version None)
Quarter: 2010Q4

REPORT INFORMATION
  Report Type: 
  Country: None (occurrence: None)
  Receive Date: 20101112
  Receipt Date: 20101020
  Transmission Date: 20110411
  Serious: Yes (Death)
  Sender: FDA-Public Use
  Company Number: GB-AMGEN-GBRCT2010000767

PATIENT

DRUGS (2)
  1. ETANERCEPT [Suspect]
     Indication: RHEUMATOID ARTHRITIS
     Dosage: 25 MG, 2 TIMES/WK
     Route: 058
     Dates: start: 20011116
  2. PREDNISOLONE [Concomitant]
     Dosage: UNKNOWN

REACTIONS (2)
  - MYOCARDIAL ISCHAEMIA [None]
  - SUBDURAL HAEMATOMA [None]
